FAERS Safety Report 23960671 (Version 1)
Quarter: 2024Q2

REPORT INFORMATION
  Report Type: Spontaneous
  Country: IT (occurrence: IT)
  Receive Date: 20240611
  Receipt Date: 20240611
  Transmission Date: 20240715
  Serious: Yes (Other)
  Sender: FDA-Public Use
  Company Number: None

PATIENT
  Age: 57 Year
  Sex: Female
  Weight: 63 kg

DRUGS (7)
  1. PACLITAXEL [Suspect]
     Active Substance: PACLITAXEL
     Indication: Endometrial adenocarcinoma
     Dates: start: 20240304, end: 20240304
  2. OMEPRAZOLE [Concomitant]
     Active Substance: DONEPEZIL HYDROCHLORIDE\OMEPRAZOLE\OMEPRAZOLE MAGNESIUM
     Indication: Premedication
  3. DEXAMETHASONE PHOSPHATE [Concomitant]
     Active Substance: DEXAMETHASONE PHOSPHATE
     Indication: Premedication
     Dosage: ANCILLARY THERAPY
     Dates: start: 20240212, end: 20240212
  4. DEXAMETHASONE [Concomitant]
     Active Substance: DEXAMETHASONE
     Indication: Premedication
     Dosage: 8MG /2 TABLETS
     Dates: start: 20240211, end: 20240512
  5. OXATOMIDE [Concomitant]
     Active Substance: OXATOMIDE
     Indication: Premedication
     Dates: start: 20240211, end: 20240212
  6. CARBOPLATIN [Concomitant]
     Active Substance: CARBOPLATIN
     Indication: Endometrial adenocarcinoma
     Dosage: AUC 5
     Dates: start: 20240212, end: 20240306
  7. PACLITAXEL [Suspect]
     Active Substance: PACLITAXEL
     Indication: Endometrial adenocarcinoma
     Dosage: 175MG / MQ Q21
     Dates: start: 20240212, end: 20240212

REACTIONS (4)
  - Abdominal pain upper [Recovered/Resolved]
  - Chest discomfort [Recovered/Resolved]
  - Feeling hot [Recovered/Resolved]
  - Dyspnoea [Recovered/Resolved]

NARRATIVE: CASE EVENT DATE: 20240212
